FAERS Safety Report 21882997 (Version 2)
Quarter: 2023Q1

REPORT INFORMATION
  Report Type: Spontaneous
  Country: US (occurrence: US)
  Receive Date: 20230119
  Receipt Date: 20230328
  Transmission Date: 20230418
  Serious: Yes (Other)
  Sender: FDA-Public Use
  Company Number: US-BEH-2023154143

PATIENT
  Age: 27 Year
  Sex: Male

DRUGS (4)
  1. HAEGARDA [Suspect]
     Active Substance: HUMAN C1-ESTERASE INHIBITOR
     Indication: Hereditary angioedema
     Dosage: 3000 INTERNATIONAL UNIT EVERY 5 DAYS
     Route: 058
     Dates: start: 20190314
  2. HAEGARDA [Suspect]
     Active Substance: HUMAN C1-ESTERASE INHIBITOR
     Indication: Prophylaxis
     Dosage: 9000 INTERNATIONAL UNIT EVERY 5 DAYS
     Route: 058
     Dates: start: 201903
  3. HAEGARDA [Suspect]
     Active Substance: HUMAN C1-ESTERASE INHIBITOR
     Indication: Hereditary angioedema
     Dosage: UNK
     Route: 065
  4. HAEGARDA [Suspect]
     Active Substance: HUMAN C1-ESTERASE INHIBITOR
     Indication: Hereditary angioedema
     Dosage: UNK
     Route: 065

REACTIONS (9)
  - Fall [Unknown]
  - Rib fracture [Unknown]
  - Hereditary angioedema [Unknown]
  - Contusion [Unknown]
  - No adverse event [Unknown]
  - Off label use [Unknown]
  - Fatigue [Unknown]
  - Hereditary angioedema [Unknown]
  - Hypersomnia [Unknown]

NARRATIVE: CASE EVENT DATE: 20221201
